FAERS Safety Report 4960363-5 (Version None)
Quarter: 2006Q1

REPORT INFORMATION
  Report Type: 
  Country: None (occurrence: None)
  Receive Date: 20060328
  Receipt Date: 20060315
  Transmission Date: 20060701
  Serious: Yes (Other)
  Sender: FDA-Public Use
  Company Number: 221989

PATIENT
  Age: 82 Year
  Sex: Female

DRUGS (9)
  1. METALYSE  (TENECTEPLASE) PWDR + SOLVENT, INFUSION SOLN, 50MG [Suspect]
     Indication: ACUTE MYOCARDIAL INFARCTION
     Dosage: 40 MG, SINGLE, INTRAVENOUS
     Route: 042
     Dates: start: 20051008, end: 20051008
  2. CALCIUM ANTAGONIST (CALCIUM CHANNEL BLOCKER NOS) [Concomitant]
  3. DIGOXIN [Concomitant]
  4. ASPIRIN [Concomitant]
  5. MORPHINE [Concomitant]
  6. XANAX [Concomitant]
  7. ANTICOAGULANT (ANTICOAGULANT NOS) [Concomitant]
  8. CARVEDILOL [Concomitant]
  9. NITRATES NOS (NITRATES NOS) [Concomitant]

REACTIONS (3)
  - ATRIAL FIBRILLATION [None]
  - CARDIAC FAILURE [None]
  - CARDIOGENIC SHOCK [None]
